FAERS Safety Report 9081747 (Version 1)
Quarter: 2013Q1

REPORT INFORMATION
  Report Type: Spontaneous
  Country: PL (occurrence: PL)
  Receive Date: 20130131
  Receipt Date: 20130131
  Transmission Date: 20140127
  Serious: Yes (Other)
  Sender: FDA-Public Use
  Company Number: PL-JNJFOC-20121014229

PATIENT
  Sex: Female
  Weight: 59 kg

DRUGS (6)
  1. REMICADE [Suspect]
     Indication: CROHN^S DISEASE
     Dosage: 0, 2, 4, 8 WEEKS
     Route: 042
     Dates: start: 20120320, end: 20120630
  2. REMICADE [Suspect]
     Indication: CROHN^S DISEASE
     Route: 042
     Dates: start: 2011
  3. REMICADE [Suspect]
     Indication: COLITIS ULCERATIVE
     Route: 042
     Dates: start: 2011
  4. REMICADE [Suspect]
     Indication: COLITIS ULCERATIVE
     Dosage: 0, 2, 4, 8 WEEKS
     Route: 042
     Dates: start: 20120320, end: 20120630
  5. SALOFALK [Concomitant]
     Indication: COLITIS ULCERATIVE
     Dosage: STARTED ON AN UNSPECIFIED DATE 10 YEARS PRIOR TO THE TIME OF REPORT
     Route: 048
  6. AZATHIOPRINE [Concomitant]
     Indication: COLITIS ULCERATIVE
     Dosage: STARTED ON AN UNSPECIFIED DATE FEW YEARS AGO FROM THE TIME OF REPORT
     Route: 048

REACTIONS (2)
  - Exposure during pregnancy [Recovered/Resolved]
  - Premature labour [Recovered/Resolved]
